FAERS Safety Report 5683045-3 (Version None)
Quarter: 2008Q1

REPORT INFORMATION
  Report Type: 
  Country: None (occurrence: None)
  Receive Date: 20080327
  Receipt Date: 20080318
  Transmission Date: 20080703
  Serious: Yes (Other)
  Sender: FDA-Public Use
  Company Number: PHBS2008IT03569

PATIENT
  Age: 76 Year
  Sex: Female

DRUGS (2)
  1. PAMIDRONATE DISODIUM [Suspect]
     Indication: BREAST CANCER
     Dosage: FOR 4 MONTHS
     Route: 042
     Dates: start: 20000101
  2. ZOLEDRONIC ACID [Suspect]
     Indication: BREAST CANCER
     Dosage: FOR 14 MONTHS
     Route: 042
     Dates: start: 20000101

REACTIONS (10)
  - ABSCESS [None]
  - BONE DISORDER [None]
  - GASTROINTESTINAL DISORDER [None]
  - LOCALISED INFECTION [None]
  - OSTEOLYSIS [None]
  - OSTEONECROSIS [None]
  - PAIN [None]
  - PATHOLOGICAL FRACTURE [None]
  - PRIMARY SEQUESTRUM [None]
  - SWELLING FACE [None]
